FAERS Safety Report 6839570-2 (Version None)
Quarter: 2010Q3

REPORT INFORMATION
  Report Type: 
  Country: None (occurrence: None)
  Receive Date: 20100714
  Receipt Date: 20100308
  Transmission Date: 20110219
  Serious: No
  Sender: FDA-Public Use
  Company Number: A0848893A

PATIENT
  Age: 61 Year
  Sex: Female

DRUGS (2)
  1. FLOVENT [Suspect]
     Indication: COUGH
     Dosage: 3PUFF PER DAY
     Route: 055
     Dates: start: 20100301
  2. NO CONCURRENT MEDICATION [Concomitant]

REACTIONS (1)
  - NASAL CONGESTION [None]
